FAERS Safety Report 5269494-6 (Version None)
Quarter: 2007Q1

REPORT INFORMATION
  Report Type: 
  Country: None (occurrence: None)
  Receive Date: 20070314
  Receipt Date: 20070308
  Transmission Date: 20070707
  Serious: Yes (Life-Threatening, Hospitalization)
  Sender: FDA-Public Use
  Company Number: 066-C5013-06120944

PATIENT
  Sex: Male

DRUGS (3)
  1. CC-5013  (LENALIDOMIDE) (CAPSULES) [Suspect]
     Indication: MULTIPLE MYELOMA
     Dosage: 25 MG, 1 IN 1 D, ORAL
     Route: 048
     Dates: start: 20061101
  2. RYTHMONORM (PROPAFENONE HYDROCHLORIDE) [Concomitant]
  3. TENORMIN [Concomitant]

REACTIONS (3)
  - ATRIAL FIBRILLATION [None]
  - CARDIAC ARREST [None]
  - VENTRICULAR TACHYCARDIA [None]
